FAERS Safety Report 9587400 (Version 3)
Quarter: 2013Q4

REPORT INFORMATION
  Report Type: Spontaneous
  Country: IT (occurrence: IT)
  Receive Date: 20131003
  Receipt Date: 20131125
  Transmission Date: 20140711
  Serious: Yes (Hospitalization)
  Sender: FDA-Public Use
  Company Number: IT-BRISTOL-MYERS SQUIBB COMPANY-19417559

PATIENT
  Age: 90 Year
  Sex: Female

DRUGS (8)
  1. COUMADIN TABS 5 MG [Suspect]
     Indication: ATRIAL FIBRILLATION
     Dosage: 1 DF=1 UNIT
     Route: 048
     Dates: start: 20130410, end: 20130904
  2. GLIMEPIRIDE [Concomitant]
     Route: 048
  3. BISOPROLOL HEMIFUMARATE [Concomitant]
     Route: 048
  4. VALSARTAN [Concomitant]
     Route: 048
  5. METFORMIN HCL [Concomitant]
     Route: 048
  6. FUROSEMIDE [Concomitant]
     Route: 048
  7. ANTRA [Concomitant]
     Dosage: CAPS
     Route: 048
  8. TAPAZOLE [Concomitant]
     Dosage: TABS
     Route: 048

REACTIONS (3)
  - Iron deficiency anaemia [Recovering/Resolving]
  - International normalised ratio increased [Recovering/Resolving]
  - Asthenia [Recovering/Resolving]
